FAERS Safety Report 19772126 (Version 2)
Quarter: 2021Q3

REPORT INFORMATION
  Report Type: Spontaneous
  Country: US (occurrence: US)
  Receive Date: 20210901
  Receipt Date: 20210907
  Transmission Date: 20211014
  Serious: Yes (Life-Threatening, Hospitalization, Other)
  Sender: FDA-Public Use
  Company Number: US-PFIZER INC-202101089667

PATIENT
  Age: 48 Year
  Sex: Female

DRUGS (2)
  1. EPINEPHRINE. [Suspect]
     Active Substance: EPINEPHRINE
     Indication: ANAPHYLAXIS TREATMENT
     Dosage: UNK
     Route: 030
  2. DIPHENHYDRAMINE. [Concomitant]
     Active Substance: DIPHENHYDRAMINE
     Indication: ANAPHYLAXIS TREATMENT
     Dosage: UNK
     Route: 042

REACTIONS (4)
  - Atherosclerotic plaque rupture [Recovered/Resolved]
  - Acute myocardial infarction [Recovered/Resolved]
  - Vascular stent thrombosis [Recovered/Resolved]
  - Vasospasm [Recovered/Resolved]
